FAERS Safety Report 8888031 (Version 4)
Quarter: 2013Q1

REPORT INFORMATION
  Report Type: Spontaneous
  Country: US (occurrence: US)
  Receive Date: 20121106
  Receipt Date: 20130205
  Transmission Date: 20140127
  Serious: Yes (Hospitalization)
  Sender: FDA-Public Use
  Company Number: US-BIOGENIDEC-2012BI049742

PATIENT
  Age: 62 Year
  Sex: Female

DRUGS (4)
  1. TYSABRI [Suspect]
     Indication: MULTIPLE SCLEROSIS
     Route: 042
     Dates: start: 20110802
  2. NARCOTICS (NOS) [Concomitant]
  3. TORADOL [Concomitant]
  4. ULTRAM [Concomitant]

REACTIONS (2)
  - Intestinal obstruction [Recovered/Resolved]
  - Gait disturbance [Unknown]
